FAERS Safety Report 22161638 (Version 1)
Quarter: 2023Q1

REPORT INFORMATION
  Report Type: Report from Study
  Country: US (occurrence: None)
  Receive Date: 20230331
  Receipt Date: 20230331
  Transmission Date: 20230418
  Serious: Yes (Hospitalization)
  Sender: FDA-Public Use
  Company Number: 2023A070963

PATIENT
  Sex: Male
  Weight: 67 kg

DRUGS (1)
  1. CALQUENCE [Suspect]
     Active Substance: ACALABRUTINIB
     Indication: Prostate cancer
     Route: 048
     Dates: start: 20230226

REACTIONS (2)
  - Angioedema [Unknown]
  - Hypersensitivity [Unknown]
